FAERS Safety Report 24246928 (Version 1)
Quarter: 2024Q3

REPORT INFORMATION
  Report Type: Spontaneous
  Country: US (occurrence: US)
  Receive Date: 20240826
  Receipt Date: 20240826
  Transmission Date: 20241017
  Serious: Yes (Death, Other)
  Sender: AUROBINDO
  Company Number: US-AUROBINDO-AUR-APL-2024-040620

PATIENT
  Age: 72 Year
  Sex: Male

DRUGS (1)
  1. AMPICILLIN [Suspect]
     Active Substance: AMPICILLIN
     Indication: Aerococcus urinae infection
     Dosage: UNK
     Route: 065

REACTIONS (5)
  - Acute myocardial infarction [Fatal]
  - Endocarditis [Fatal]
  - Aorto-cardiac fistula [Fatal]
  - Abscess [Fatal]
  - Drug ineffective [Fatal]
